FAERS Safety Report 23783059 (Version 2)
Quarter: 2024Q3

REPORT INFORMATION
  Report Type: Spontaneous
  Country: TR (occurrence: TR)
  Receive Date: 20240425
  Receipt Date: 20240826
  Transmission Date: 20241017
  Serious: Yes (Hospitalization, Other)
  Sender: ELI LILLY AND CO
  Company Number: TR-MLMSERVICE-20240405-PI015118-00153-1

PATIENT
  Age: 13 Year
  Sex: Female

DRUGS (7)
  1. FLUOXETINE HYDROCHLORIDE [Interacting]
     Active Substance: FLUOXETINE HYDROCHLORIDE
     Indication: Autism spectrum disorder
     Dosage: 30 MG, DAILY
     Route: 065
  2. FLUOXETINE HYDROCHLORIDE [Interacting]
     Active Substance: FLUOXETINE HYDROCHLORIDE
  3. RISPERIDONE [Interacting]
     Active Substance: RISPERIDONE
     Indication: Behaviour disorder
     Dosage: 0.5 MG, DAILY
     Route: 065
  4. RISPERIDONE [Interacting]
     Active Substance: RISPERIDONE
     Dosage: 2 MG, DAILY
     Route: 065
  5. ARIPIPRAZOLE [Interacting]
     Active Substance: ARIPIPRAZOLE
     Indication: Autism spectrum disorder
     Dosage: 2 MG, DAILY
     Route: 065
  6. ARIPIPRAZOLE [Interacting]
     Active Substance: ARIPIPRAZOLE
     Dosage: 4 MG, DAILY
     Route: 065
  7. METHYLPHENIDATE [Concomitant]
     Active Substance: METHYLPHENIDATE
     Indication: Impulsive behaviour
     Dosage: LONG-RELEASE
     Route: 065

REACTIONS (4)
  - Drug interaction [Recovering/Resolving]
  - Drug interaction [Recovering/Resolving]
  - Tardive dyskinesia [Recovered/Resolved]
  - Intentional product misuse [Unknown]
